FAERS Safety Report 16624863 (Version 1)
Quarter: 2019Q3

REPORT INFORMATION
  Report Type: Spontaneous
  Country: US (occurrence: US)
  Receive Date: 20190611
  Receipt Date: 20190611
  Transmission Date: 20191004
  Serious: Yes (Hospitalization)
  Sender: FDA-Public Use
  Company Number: None

PATIENT
  Sex: Female

DRUGS (6)
  1. FLONASE SENS SUS [Concomitant]
  2. CLARITIN TAB [Concomitant]
  3. CYMBALTA CAP [Concomitant]
  4. MONTELUKAST TAB [Concomitant]
  5. XOLAIR [Suspect]
     Active Substance: OMALIZUMAB
     Indication: PRODUCT USED FOR UNKNOWN INDICATION
     Dosage: ?          OTHER FREQUENCY:Q 2 WKS ;?
     Route: 058
     Dates: start: 20160122
  6. ASPIRIN TAB [Concomitant]

REACTIONS (3)
  - Off label use [None]
  - Weight decreased [None]
  - Surgery [None]
